FAERS Safety Report 8875495 (Version 1)
Quarter: 2012Q4

REPORT INFORMATION
  Report Type: 
  Country: JP (occurrence: JP)
  Receive Date: 20121030
  Receipt Date: 20121030
  Transmission Date: 20130627
  Serious: Yes (Death, Other)
  Sender: FDA-Public Use
  Company Number: JP-WATSON-2012-18479

PATIENT
  Age: 71 Year
  Sex: Male

DRUGS (1)
  1. PREDNISOLONE (UNKNOWN) [Suspect]
     Indication: AUTOIMMUNE PANCREATITIS
     Dosage: 40 mg, daily
     Route: 048

REACTIONS (3)
  - Renal cancer metastatic [Fatal]
  - Septic shock [Not Recovered/Not Resolved]
  - Aspergilloma [Not Recovered/Not Resolved]
